FAERS Safety Report 6830048-9 (Version None)
Quarter: 2010Q3

REPORT INFORMATION
  Report Type: 
  Country: None (occurrence: None)
  Receive Date: 20100711
  Receipt Date: 20100504
  Transmission Date: 20110219
  Serious: No
  Sender: FDA-Public Use
  Company Number: US-ALLERGAN-1005842US

PATIENT
  Age: 50 Year
  Sex: Female

DRUGS (2)
  1. LATISSE [Suspect]
     Indication: GROWTH OF EYELASHES
     Dosage: 1 GTT, QHS
     Route: 061
     Dates: start: 20100201, end: 20100401
  2. SYNTHROID [Concomitant]
     Indication: HYPOTHYROIDISM

REACTIONS (5)
  - EYE DISCHARGE [None]
  - EYE IRRITATION [None]
  - EYE PRURITUS [None]
  - EYELID OEDEMA [None]
  - MADAROSIS [None]
